FAERS Safety Report 20342939 (Version 2)
Quarter: 2022Q1

REPORT INFORMATION
  Report Type: Spontaneous
  Country: US (occurrence: US)
  Receive Date: 20220117
  Receipt Date: 20220331
  Transmission Date: 20220424
  Serious: Yes (Other)
  Sender: FDA-Public Use
  Company Number: US-HORIZON THERAPEUTICS-HZN-2022-000175

PATIENT

DRUGS (1)
  1. DUEXIS [Suspect]
     Active Substance: FAMOTIDINE\IBUPROFEN
     Indication: Osteoarthritis
     Dosage: 800MG/26.6MG, TID
     Route: 065

REACTIONS (3)
  - Arthropathy [Unknown]
  - Product dose omission issue [Unknown]
  - Pain [Unknown]
